FAERS Safety Report 16336469 (Version 1)
Quarter: 2019Q2

REPORT INFORMATION
  Report Type: Report from Study
  Country: GB (occurrence: GB)
  Receive Date: 20190521
  Receipt Date: 20190521
  Transmission Date: 20190711
  Serious: Yes (Other)
  Sender: FDA-Public Use
  Company Number: GB-ROCHE-2317975

PATIENT

DRUGS (2)
  1. SOMATROPIN. [Suspect]
     Active Substance: SOMATROPIN
     Indication: NEOPLASM
  2. SOMATROPIN. [Suspect]
     Active Substance: SOMATROPIN
     Indication: GENE MUTATION
     Route: 065

REACTIONS (18)
  - Pneumonia [Unknown]
  - Hypoglycaemia [Unknown]
  - Appendicitis [Unknown]
  - Otitis media [Unknown]
  - Gastroenteritis [Unknown]
  - Vomiting [Unknown]
  - Adrenocortical insufficiency acute [Unknown]
  - Attention deficit/hyperactivity disorder [Unknown]
  - Precocious puberty [Unknown]
  - Viral infection [Unknown]
  - Epiphysiolysis [Unknown]
  - Craniopharyngioma [Unknown]
  - Scoliosis [Unknown]
  - Headache [Unknown]
  - Seizure [Unknown]
  - Hypothyroidism [Unknown]
  - Arthralgia [Unknown]
  - Upper respiratory tract infection [Unknown]
